FAERS Safety Report 8743936 (Version 2)
Quarter: 2013Q3

REPORT INFORMATION
  Report Type: Spontaneous
  Country: US (occurrence: US)
  Receive Date: 20120824
  Receipt Date: 20130802
  Transmission Date: 20140515
  Serious: No
  Sender: FDA-Public Use
  Company Number: US-009507513-1207USA001920

PATIENT
  Age: 5 Year
  Sex: 0

DRUGS (1)
  1. COPPERTONE SPORT PRO SERIES CLEAR CONTINUOUS SPRAY SPF-50 [Suspect]
     Indication: PRODUCT USED FOR UNKNOWN INDICATION
     Dosage: UNK, ONCE
     Dates: start: 2012

REACTIONS (1)
  - Skin burning sensation [Unknown]
